FAERS Safety Report 11789159 (Version 1)
Quarter: 2015Q4

REPORT INFORMATION
  Report Type: Spontaneous
  Country: ES (occurrence: ES)
  Receive Date: 20151201
  Receipt Date: 20151201
  Transmission Date: 20160305
  Serious: Yes (Hospitalization)
  Sender: FDA-Public Use
  Company Number: ES-FRESENIUS KABI-FK201506129

PATIENT
  Age: 70 Year
  Sex: Male

DRUGS (2)
  1. CLINDAMYCIN [Suspect]
     Active Substance: CLINDAMYCIN\CLINDAMYCIN PHOSPHATE
     Indication: EXTRADURAL ABSCESS
     Route: 065
  2. DORIPENEM [Suspect]
     Active Substance: DORIPENEM
     Indication: EXTRADURAL ABSCESS
     Route: 065

REACTIONS (2)
  - Toxic skin eruption [Recovered/Resolved]
  - Allergic eosinophilia [Recovered/Resolved]
